FAERS Safety Report 4728201-3 (Version None)
Quarter: 2005Q3

REPORT INFORMATION
  Report Type: 
  Country: None (occurrence: None)
  Receive Date: 20050727
  Receipt Date: 20050715
  Transmission Date: 20060218
  Serious: Yes (Death)
  Sender: FDA-Public Use
  Company Number: 2005103649

PATIENT
  Sex: Male

DRUGS (2)
  1. NORVASC [Suspect]
     Indication: HYPERTENSION
     Dosage: (10 MG) ORAL
     Route: 048
     Dates: end: 20050201
  2. LIPITOR [Concomitant]
     Route: 048

REACTIONS (1)
  - AORTIC ANEURYSM [None]
